FAERS Safety Report 8242444-6 (Version None)
Quarter: 2012Q1

REPORT INFORMATION
  Report Type: 
  Country: None (occurrence: None)
  Receive Date: 20120329
  Receipt Date: 20120320
  Transmission Date: 20120608
  Serious: Yes (Hospitalization)
  Sender: FDA-Public Use
  Company Number: US-JNJFOC-20111101299

PATIENT
  Sex: Male
  Weight: 81.65 kg

DRUGS (4)
  1. METHOTREXATE [Concomitant]
  2. REMICADE [Suspect]
     Indication: PSORIATIC ARTHROPATHY
     Route: 042
     Dates: start: 19980101
  3. HYDROCODONE [Concomitant]
     Indication: PAIN
  4. REMICADE [Suspect]
     Indication: RHEUMATOID ARTHRITIS
     Route: 042
     Dates: start: 19980101

REACTIONS (4)
  - SPINAL COLUMN STENOSIS [None]
  - SPONDYLITIS [None]
  - PAIN [None]
  - INTERVERTEBRAL DISC DEGENERATION [None]
